FAERS Safety Report 17135358 (Version 12)
Quarter: 2020Q2

REPORT INFORMATION
  Report Type: Spontaneous
  Country: US (occurrence: US)
  Receive Date: 20191210
  Receipt Date: 20200430
  Transmission Date: 20200713
  Serious: No
  Sender: FDA-Public Use
  Company Number: US-PFIZER INC-2019530937

PATIENT
  Age: 75 Year
  Sex: Female

DRUGS (2)
  1. XELJANZ XR [Suspect]
     Active Substance: TOFACITINIB CITRATE
     Indication: RHEUMATOID ARTHRITIS
     Dosage: 11 MG, 1X/DAY (ONE TABLET A DAY, IN THE MORNING)
     Route: 048
     Dates: start: 20191230
  2. XELJANZ XR [Suspect]
     Active Substance: TOFACITINIB CITRATE
     Dosage: 11 MG, 1X/DAY (ONE TABLET A DAY, IN THE MORNING)
     Route: 048

REACTIONS (10)
  - Drug ineffective [Unknown]
  - Pain [Unknown]
  - Arthralgia [Unknown]
  - White blood cell count abnormal [Unknown]
  - Nasopharyngitis [Unknown]
  - Cough [Unknown]
  - Pain in extremity [Unknown]
  - Rash erythematous [Recovering/Resolving]
  - Balance disorder [Unknown]
  - Sensitivity to weather change [Unknown]
